FAERS Safety Report 10762761 (Version 2)
Quarter: 2015Q1

REPORT INFORMATION
  Report Type: Spontaneous
  Country: PL (occurrence: PL)
  Receive Date: 20150204
  Receipt Date: 20150211
  Transmission Date: 20150721
  Serious: Yes (Life-Threatening, Hospitalization)
  Sender: FDA-Public Use
  Company Number: PL-TEVA-538379ISR

PATIENT
  Age: 52 Year
  Sex: Male

DRUGS (3)
  1. CLARITHROMYCIN. [Suspect]
     Active Substance: CLARITHROMYCIN
     Route: 065
  2. COTRIMOXAZOLE [Suspect]
     Active Substance: SULFAMETHOXAZOLE\TRIMETHOPRIM
  3. AMIODARONE [Suspect]
     Active Substance: AMIODARONE

REACTIONS (3)
  - Ventricular arrhythmia [Recovered/Resolved]
  - Pulmonary oedema [Recovered/Resolved]
  - Cardiac arrest [Recovered/Resolved]
